FAERS Safety Report 12932444 (Version 1)
Quarter: 2016Q4

REPORT INFORMATION
  Report Type: Spontaneous
  Country: US (occurrence: US)
  Receive Date: 20161111
  Receipt Date: 20161111
  Transmission Date: 20170207
  Serious: No
  Sender: FDA-Public Use
  Company Number: US-BAYER-2016-210229

PATIENT
  Age: 89 Year
  Sex: Male
  Weight: 81.63 kg

DRUGS (4)
  1. MIRALAX [Suspect]
     Active Substance: POLYETHYLENE GLYCOL 3350
  2. CRESTOR [Concomitant]
     Active Substance: ROSUVASTATIN CALCIUM
  3. MIRAFIBER CAPLETS [Suspect]
     Active Substance: CITRIC ACID MONOHYDRATE\METHYLCELLULOSE
     Indication: CONSTIPATION
     Dosage: 2 DF, QD
     Route: 048
  4. WATER. [Concomitant]
     Active Substance: WATER

REACTIONS (3)
  - Product use issue [Unknown]
  - Diarrhoea [Unknown]
  - Frequent bowel movements [Unknown]
